FAERS Safety Report 5275301-8 (Version None)
Quarter: 2007Q1

REPORT INFORMATION
  Report Type: 
  Country: None (occurrence: None)
  Receive Date: 20070322
  Receipt Date: 20070322
  Transmission Date: 20070707
  Serious: Yes (Hospitalization)
  Sender: FDA-Public Use
  Company Number: None

PATIENT
  Sex: Female
  Weight: 53.6 kg

DRUGS (11)
  1. CYCLOPHOSPHAMIDE [Suspect]
     Dosage: 966 MG
  2. DOXIL [Suspect]
     Dosage: 56 MG
  3. PREDNISONE [Suspect]
     Dosage: 60 MG
  4. RITUXIMAB (MOAB C2B8 ANTI CD20, CHIMERIC) [Suspect]
     Dosage: 604 MG
  5. VINCRISTINE SULFATE [Suspect]
     Dosage: 2 MG
  6. DARVON [Concomitant]
  7. DESICCATED THYROID [Concomitant]
  8. MERREM [Concomitant]
  9. MORPHINE SULFATE [Concomitant]
  10. MULTI-VITAMIN [Concomitant]
  11. NEXIUM [Concomitant]

REACTIONS (2)
  - DIVERTICULITIS [None]
  - FEBRILE NEUTROPENIA [None]
